FAERS Safety Report 6645491-0 (Version None)
Quarter: 2010Q1

REPORT INFORMATION
  Report Type: 
  Country: None (occurrence: None)
  Receive Date: 20100323
  Receipt Date: 20100315
  Transmission Date: 20100710
  Serious: Yes (Other)
  Sender: FDA-Public Use
  Company Number: US-BIOGENIDEC-2010BI008769

PATIENT
  Sex: Female

DRUGS (3)
  1. AVONEX [Suspect]
     Indication: DRUG USE FOR UNKNOWN INDICATION
     Route: 030
  2. REBIF [Concomitant]
  3. NOVANTRONE [Concomitant]

REACTIONS (1)
  - LOSS OF CONTROL OF LEGS [None]
